FAERS Safety Report 5902890-X (Version None)
Quarter: 2008Q3

REPORT INFORMATION
  Report Type: 
  Country: None (occurrence: None)
  Receive Date: 20080930
  Receipt Date: 20080922
  Transmission Date: 20090109
  Serious: Yes (Death)
  Sender: FDA-Public Use
  Company Number: PHBS2008US05834

PATIENT
  Age: 71 Year
  Sex: Male

DRUGS (3)
  1. CYCLOSPORINE [Suspect]
     Indication: MYOCARDITIS
  2. METHYLPREDNISOLONE [Suspect]
     Indication: MYOCARDITIS
  3. PREDNISOLONE [Suspect]
     Indication: MYOCARDITIS

REACTIONS (4)
  - BRONCHIAL SECRETION RETENTION [None]
  - PNEUMONIA CRYPTOCOCCAL [None]
  - RESPIRATORY ARREST [None]
  - TRACHEOSTOMY [None]
